FAERS Safety Report 4439135-6 (Version None)
Quarter: 2004Q3

REPORT INFORMATION
  Report Type: 
  Country: None (occurrence: None)
  Receive Date: 20040831
  Receipt Date: 20040824
  Transmission Date: 20050211
  Serious: Yes (Other)
  Sender: FDA-Public Use
  Company Number: 002544

PATIENT
  Sex: Female

DRUGS (5)
  1. MEDROXYPROGESTERONE ACETATE [Suspect]
     Dates: start: 19860101, end: 19920101
  2. PREMPRO [Suspect]
     Dates: start: 19950101, end: 19990101
  3. COMBIPATCH (NORETHYISTERONE ACETATE, ESTRADIOL) [Suspect]
     Dates: start: 19920101, end: 19950101
  4. PREMARIN [Suspect]
     Dates: start: 19860101, end: 19920101
  5. PROVERA [Suspect]
     Dates: start: 19860101, end: 19920101

REACTIONS (1)
  - BREAST CANCER FEMALE [None]
